FAERS Safety Report 23970908 (Version 1)
Quarter: 2024Q2

REPORT INFORMATION
  Report Type: Spontaneous
  Country: MA (occurrence: MA)
  Receive Date: 20240613
  Receipt Date: 20240613
  Transmission Date: 20240716
  Serious: Yes (Other)
  Sender: FDA-Public Use
  Company Number: MA-ALKEM LABORATORIES LIMITED-MA-ALKEM-2024-05068

PATIENT
  Age: 48 Year
  Sex: Female

DRUGS (3)
  1. EVEROLIMUS [Suspect]
     Active Substance: EVEROLIMUS
     Indication: Insulinoma
     Dosage: 10 MILLIGRAM, QD
     Route: 065
  2. EVEROLIMUS [Suspect]
     Active Substance: EVEROLIMUS
     Dosage: 5 MILLIGRAM, QD (REDUCING THE DOSAGE)
     Route: 065
  3. DEXTROSE [Concomitant]
     Active Substance: DEXTROSE\DEXTROSE MONOHYDRATE
     Indication: Insulinoma
     Dosage: UNK (CONTINUOUS INFUSION)
     Route: 042

REACTIONS (1)
  - Stomatitis [Recovered/Resolved]
